FAERS Safety Report 6317428-5 (Version None)
Quarter: 2009Q3

REPORT INFORMATION
  Report Type: 
  Country: None (occurrence: None)
  Receive Date: 20090821
  Receipt Date: 20090810
  Transmission Date: 20100115
  Serious: Yes (Other)
  Sender: FDA-Public Use
  Company Number: US-JNJFOC-20090803231

PATIENT
  Age: 68 Year
  Sex: Female

DRUGS (1)
  1. REMICADE [Suspect]
     Indication: DRUG USE FOR UNKNOWN INDICATION
     Dosage: 4 INFUSIONS ON UNSPECIFIED DATES
     Route: 042

REACTIONS (3)
  - CHILLS [None]
  - OPTIC NERVE SHEATH HAEMORRHAGE [None]
  - TREMOR [None]
